FAERS Safety Report 11928941 (Version 4)
Quarter: 2016Q1

REPORT INFORMATION
  Report Type: Report from Study
  Country: US (occurrence: US)
  Receive Date: 20160120
  Receipt Date: 20160315
  Transmission Date: 20160526
  Serious: No
  Sender: FDA-Public Use
  Company Number: US-AMGEN-USASL2016004041

PATIENT
  Age: 50 Year
  Sex: Female

DRUGS (1)
  1. ENBREL [Suspect]
     Active Substance: ETANERCEPT
     Indication: PSORIASIS
     Dosage: 50MG, TWICE WEEKLY
     Route: 058
     Dates: start: 20150903

REACTIONS (8)
  - Adverse drug reaction [Unknown]
  - Bronchitis [Unknown]
  - Injection site bruising [Unknown]
  - Pharyngitis streptococcal [Unknown]
  - Drug administration error [Unknown]
  - Injection site pain [Unknown]
  - Malaise [Unknown]
  - Psoriasis [Unknown]

NARRATIVE: CASE EVENT DATE: 2016
